FAERS Safety Report 7232775-0 (Version None)
Quarter: 2011Q1

REPORT INFORMATION
  Report Type: 
  Country: None (occurrence: None)
  Receive Date: 20110110
  Receipt Date: 20110105
  Transmission Date: 20110831
  Serious: Yes (Other)
  Sender: FDA-Public Use
  Company Number: DE-1184296

PATIENT
  Age: 54 Year
  Sex: Female

DRUGS (3)
  1. TOBRADEX [Suspect]
     Indication: INTRAOCULAR LENS IMPLANT
     Dosage: INTRAOCULAR LENS IMPLANT OPHTHALMIC
     Route: 047
     Dates: start: 20100814, end: 20101120
  2. MAXIDEX [Suspect]
     Indication: INTRAOCULAR LENS IMPLANT
     Dosage: OPHTHALMIC
     Route: 047
     Dates: start: 20101120, end: 20101101
  3. AZARGA (AZARGA) 1/0.5 % OPHTHALMIC SUSPENSION EYE DROPS, SUSPENSION [Suspect]
     Indication: GLAUCOMA
     Dosage: 1 GTT BID OPHTHALMIC
     Route: 047
     Dates: start: 20100814, end: 20101128

REACTIONS (10)
  - VISUAL ACUITY REDUCED [None]
  - PHOTOPHOBIA [None]
  - LACRIMATION INCREASED [None]
  - VISUAL IMPAIRMENT [None]
  - ANTERIOR CHAMBER FIBRIN [None]
  - POST PROCEDURAL COMPLICATION [None]
  - OCULAR HYPERAEMIA [None]
  - EYE PRURITUS [None]
  - EYE PAIN [None]
  - EYE INFLAMMATION [None]
